FAERS Safety Report 5363916-8 (Version None)
Quarter: 2007Q2

REPORT INFORMATION
  Report Type: 
  Country: None (occurrence: None)
  Receive Date: 20070530
  Receipt Date: 20070103
  Transmission Date: 20071010
  Serious: No
  Sender: FDA-Public Use
  Company Number: 2007PV027761

PATIENT
  Age: 37 Year
  Sex: Female

DRUGS (5)
  1. BYETTA [Suspect]
     Dosage: 10 + 5 + 5 MCG; QAM; SC
     Route: 058
     Dates: start: 20050101, end: 20060801
  2. BYETTA [Suspect]
     Dosage: 10 + 5 + 5 MCG; QAM; SC
     Route: 058
     Dates: start: 20060801
  3. BYETTA [Suspect]
     Dosage: 10 + 5 + 5 MCG; QAM; SC
     Route: 058
     Dates: start: 20060801
  4. AVANDAMET [Concomitant]
  5. GLIPIZIDE [Concomitant]

REACTIONS (9)
  - BACK PAIN [None]
  - BLOOD GLUCOSE DECREASED [None]
  - CONTUSION [None]
  - DEPRESSED LEVEL OF CONSCIOUSNESS [None]
  - DYSARTHRIA [None]
  - FALL [None]
  - HYPERHIDROSIS [None]
  - NAUSEA [None]
  - TREMOR [None]
